FAERS Safety Report 7056565-7 (Version None)
Quarter: 2010Q4

REPORT INFORMATION
  Report Type: 
  Country: None (occurrence: None)
  Receive Date: 20101018
  Receipt Date: 20101001
  Transmission Date: 20110411
  Serious: Yes (Hospitalization)
  Sender: FDA-Public Use
  Company Number: 2010003569

PATIENT
  Age: 69 Year
  Sex: Female
  Weight: 54 kg

DRUGS (8)
  1. ERLOTINIB HYDROCHLORIDE [Suspect]
     Indication: LARGE CELL CARCINOMA OF THE RESPIRATORY TRACT STAGE UNSPECIFIED
     Dosage: 100 MG, QD, ORAL
     Route: 048
     Dates: start: 20090915
  2. ZYRTEC [Concomitant]
  3. NOVAMIN (PROCHLORPERAZINE) [Concomitant]
  4. MAGNESIUM OXIDE [Concomitant]
  5. ETODOLAC [Concomitant]
  6. MUCOSTA (REBAMIPIDE) [Concomitant]
  7. FENTANYL [Concomitant]
  8. UREPEARL (UREA) [Concomitant]

REACTIONS (5)
  - DECUBITUS ULCER [None]
  - DERMATITIS ACNEIFORM [None]
  - PAIN [None]
  - PRURITUS [None]
  - SKIN EROSION [None]
